FAERS Safety Report 14730876 (Version 1)
Quarter: 2018Q2

REPORT INFORMATION
  Report Type: Spontaneous
  Country: CN (occurrence: CN)
  Receive Date: 20180406
  Receipt Date: 20180406
  Transmission Date: 20180711
  Serious: Yes (Disabling)
  Sender: FDA-Public Use
  Company Number: CN-ALLERGAN-1819307US

PATIENT
  Age: 50 Year
  Sex: Female
  Weight: 72 kg

DRUGS (3)
  1. CITALOPRAM HYDROBROMIDE - BP [Suspect]
     Active Substance: CITALOPRAM HYDROBROMIDE
     Indication: ANXIETY
     Route: 048
     Dates: start: 20161018, end: 20171018
  2. GABAPENTINE [Suspect]
     Active Substance: GABAPENTIN
     Indication: ANXIETY
     Dosage: 0.3 G, TID
     Route: 048
     Dates: start: 20161018, end: 20171018
  3. QUETIAPIN [Suspect]
     Active Substance: QUETIAPINE
     Indication: ANXIETY
     Dosage: 0.3 G, QD
     Route: 048
     Dates: start: 20161018, end: 20171018

REACTIONS (1)
  - Hepatic function abnormal [Recovering/Resolving]

NARRATIVE: CASE EVENT DATE: 20171018
